FAERS Safety Report 6479845-2 (Version None)
Quarter: 2009Q4

REPORT INFORMATION
  Report Type: 
  Country: None (occurrence: None)
  Receive Date: 20091208
  Receipt Date: 20091202
  Transmission Date: 20100525
  Serious: Yes (Other)
  Sender: FDA-Public Use
  Company Number: GB-ROCHE-669688

PATIENT
  Sex: Female

DRUGS (1)
  1. TAMIFLU [Suspect]
     Indication: H1N1 INFLUENZA
     Dosage: TOOK THREE DOSES IN TOTAL
     Route: 065
     Dates: start: 20090708, end: 20090709

REACTIONS (1)
  - ABORTION SPONTANEOUS [None]
